FAERS Safety Report 8413647-2 (Version None)
Quarter: 2012Q2

REPORT INFORMATION
  Report Type: 
  Country: None (occurrence: None)
  Receive Date: 20120605
  Receipt Date: 20120525
  Transmission Date: 20120825
  Serious: Yes (Hospitalization, Other)
  Sender: FDA-Public Use
  Company Number: IE-BRISTOL-MYERS SQUIBB COMPANY-16635203

PATIENT
  Age: 73 Year
  Sex: Male

DRUGS (3)
  1. METFORMIN HCL [Suspect]
     Dates: start: 20120101
  2. ACETYLSALICYLIC ACID SRT [Suspect]
  3. ONGLYZA [Suspect]
     Dates: start: 20120101

REACTIONS (2)
  - PANCREATIC CARCINOMA [None]
  - RENAL FAILURE ACUTE [None]
